FAERS Safety Report 7993200-5 (Version None)
Quarter: 2011Q4

REPORT INFORMATION
  Report Type: 
  Country: None (occurrence: None)
  Receive Date: 20111219
  Receipt Date: 20110422
  Transmission Date: 20120403
  Serious: No
  Sender: FDA-Public Use
  Company Number: US-ASTRAZENECA-2011SE23404

PATIENT
  Age: 44 Year
  Sex: Female

DRUGS (2)
  1. CRESTOR [Suspect]
     Route: 048
  2. DICLOFENAC SODIUM [Concomitant]

REACTIONS (4)
  - DRUG INEFFECTIVE [None]
  - MOBILITY DECREASED [None]
  - PAIN IN EXTREMITY [None]
  - BACK PAIN [None]
